FAERS Safety Report 7533999-5 (Version None)
Quarter: 2011Q2

REPORT INFORMATION
  Report Type: 
  Country: None (occurrence: None)
  Receive Date: 20110608
  Receipt Date: 20060717
  Transmission Date: 20111010
  Serious: Yes (Death)
  Sender: FDA-Public Use
  Company Number: PHMT2006CA01436

PATIENT
  Sex: Male
  Weight: 94.61 kg

DRUGS (3)
  1. PIPORTIL [Concomitant]
     Dosage: 220 MG, BIW
     Route: 030
  2. CLOZAPINE [Suspect]
     Dosage: 250 MG, QD
     Route: 048
  3. CLOZAPINE [Suspect]
     Indication: SCHIZOPHRENIA
     Dosage: 525 MG

REACTIONS (1)
  - DEATH [None]
